FAERS Safety Report 9981015 (Version 1)
Quarter: 2014Q1

REPORT INFORMATION
  Report Type: Spontaneous
  Country: US (occurrence: US)
  Receive Date: 20140307
  Receipt Date: 20140307
  Transmission Date: 20141002
  Serious: Yes (Hospitalization, Disabling, Other)
  Sender: FDA-Public Use
  Company Number: US-TEVA-466370USA

PATIENT
  Sex: Female

DRUGS (3)
  1. ADIPEX-P [Suspect]
     Indication: WEIGHT DECREASED
  2. IONAMIN [Suspect]
     Indication: WEIGHT DECREASED
  3. BONTRIL [Suspect]
     Indication: WEIGHT DECREASED

REACTIONS (10)
  - Congestive cardiomyopathy [Unknown]
  - Cardiac disorder [Unknown]
  - Fatigue [Unknown]
  - Fatigue [Unknown]
  - Disturbance in attention [Unknown]
  - Irritability [Unknown]
  - Nausea [Unknown]
  - Headache [Unknown]
  - Chest pain [Unknown]
  - Dyspnoea [Unknown]
